FAERS Safety Report 5082920-0 (Version None)
Quarter: 2006Q3

REPORT INFORMATION
  Report Type: 
  Country: None (occurrence: None)
  Receive Date: 20060720
  Receipt Date: 20060403
  Transmission Date: 20061208
  Serious: Yes (Disabling)
  Sender: FDA-Public Use
  Company Number: 2006046388

PATIENT
  Sex: 0

DRUGS (1)
  1. CELEBREX [Suspect]
     Indication: ARTHRITIS
     Dosage: (200 MG, UNKNOWN), ORAL
     Route: 048
     Dates: start: 20030328, end: 20031201

REACTIONS (1)
  - MYOCARDIAL INFARCTION [None]
